FAERS Safety Report 4472939-2 (Version None)
Quarter: 2004Q4

REPORT INFORMATION
  Report Type: 
  Country: None (occurrence: None)
  Receive Date: 20041013
  Receipt Date: 20041007
  Transmission Date: 20050328
  Serious: Yes (Hospitalization)
  Sender: FDA-Public Use
  Company Number: AU-SOLVAY-00204003625

PATIENT
  Sex: Female

DRUGS (2)
  1. COVERSYL [Suspect]
     Indication: ESSENTIAL HYPERTENSION
     Dosage: DAILY DOSE: 2 MILLIGRAM(S)
     Route: 048
  2. IBELEX [Suspect]
     Indication: RESPIRATORY TRACT INFECTION
     Dosage: DAILY DOSE: 2 GRAM(S)
     Route: 048
     Dates: start: 20031117, end: 20031117

REACTIONS (3)
  - LOSS OF CONSCIOUSNESS [None]
  - OROPHARYNGEAL SWELLING [None]
  - RASH GENERALISED [None]
